FAERS Safety Report 25372227 (Version 1)
Quarter: 2025Q2

REPORT INFORMATION
  Report Type: Spontaneous
  Country: US (occurrence: US)
  Receive Date: 20250529
  Receipt Date: 20250529
  Transmission Date: 20250716
  Serious: Yes (Other)
  Sender: Haleon PLC
  Company Number: US-HALEON-2244336

PATIENT
  Age: 66 Year
  Sex: Female

DRUGS (1)
  1. SENSODYNE PRONAMEL INTENSIVE ENAMEL REPAIR WHITENING [Suspect]
     Active Substance: POTASSIUM NITRATE\SODIUM FLUORIDE
     Indication: Hyperaesthesia teeth

REACTIONS (4)
  - Oral pain [Not Recovered/Not Resolved]
  - Tooth injury [Unknown]
  - Toothache [Not Recovered/Not Resolved]
  - Expired product administered [Unknown]
